FAERS Safety Report 24832872 (Version 1)
Quarter: 2025Q1

REPORT INFORMATION
  Report Type: Report from Study
  Country: US (occurrence: US)
  Receive Date: 20250111
  Receipt Date: 20250111
  Transmission Date: 20250408
  Serious: Yes (Other)
  Sender: ABBVIE
  Company Number: US-ABBVIE-6073301

PATIENT
  Age: 50 Year
  Sex: Female

DRUGS (1)
  1. SKYRIZI [Suspect]
     Active Substance: RISANKIZUMAB-RZAA
     Indication: Psoriasis
     Route: 058
     Dates: start: 20231006, end: 20241119

REACTIONS (6)
  - Hip arthroplasty [Recovering/Resolving]
  - Herpes zoster [Recovering/Resolving]
  - SARS-CoV-2 test positive [Recovering/Resolving]
  - Dyspnoea [Unknown]
  - Pyrexia [Unknown]
  - Ear infection [Unknown]

NARRATIVE: CASE EVENT DATE: 20241119
